FAERS Safety Report 10224009 (Version 1)
Quarter: 2014Q2

REPORT INFORMATION
  Report Type: Spontaneous
  Country: US (occurrence: US)
  Receive Date: 20140609
  Receipt Date: 20140609
  Transmission Date: 20141212
  Serious: No
  Sender: FDA-Public Use
  Company Number: US-SHIRE-US201402806

PATIENT
  Age: 5 Year
  Sex: Male
  Weight: 18.14 kg

DRUGS (3)
  1. VYVANSE [Suspect]
     Indication: ATTENTION DEFICIT/HYPERACTIVITY DISORDER
     Dosage: 20 MG, 1X/DAY:QD
     Route: 048
     Dates: start: 201404
  2. DEPAKOTE [Concomitant]
     Indication: ANGER
     Dosage: 125 MG, 1X/DAY:QD
     Route: 048
     Dates: start: 201402
  3. DEPAKOTE [Concomitant]
     Indication: AFFECTIVE DISORDER

REACTIONS (2)
  - Off label use [Not Recovered/Not Resolved]
  - No adverse event [Not Recovered/Not Resolved]
